FAERS Safety Report 9728069 (Version 1)
Quarter: 2013Q4

REPORT INFORMATION
  Report Type: Report from Study
  Country: BR (occurrence: BR)
  Receive Date: 20131204
  Receipt Date: 20131204
  Transmission Date: 20140711
  Serious: Yes (Other)
  Sender: FDA-Public Use
  Company Number: PHHY2013BR140045

PATIENT
  Age: 72 Year
  Sex: Female
  Weight: 62 kg

DRUGS (6)
  1. ACLASTA [Suspect]
     Indication: OSTEOPOROSIS
     Dosage: 5 MG, UNK
     Route: 042
     Dates: start: 2011
  2. ACETYLSALICYLIC ACID [Suspect]
     Dosage: UNK
     Dates: start: 2000
  3. EXELON [Concomitant]
     Dosage: UNK
     Dates: start: 2010
  4. SERTRALINE [Concomitant]
     Dosage: 25 MG, UNK
     Dates: start: 2008
  5. OMEPRAZOLE [Concomitant]
     Dosage: UNK
  6. VASODIPINA [Concomitant]
     Dosage: UNK

REACTIONS (6)
  - Transient ischaemic attack [Unknown]
  - Sluggishness [Recovering/Resolving]
  - Daydreaming [Recovering/Resolving]
  - Sensation of heaviness [Recovering/Resolving]
  - Tongue disorder [Recovering/Resolving]
  - Oral disorder [Recovering/Resolving]
